FAERS Safety Report 20353928 (Version 6)
Quarter: 2025Q3

REPORT INFORMATION
  Report Type: Report from Study
  Country: JP (occurrence: JP)
  Receive Date: 20220120
  Receipt Date: 20250909
  Transmission Date: 20251021
  Serious: Yes (Hospitalization, Other)
  Sender: ALEXION PHARMACEUTICALS
  Company Number: JP-ALXN-A202114099

PATIENT
  Age: 26 Year
  Sex: Male
  Weight: 62 kg

DRUGS (4)
  1. SOLIRIS [Suspect]
     Active Substance: ECULIZUMAB
     Indication: Neuromyelitis optica spectrum disorder
     Dosage: 900 MILLIGRAM, QW
     Dates: start: 20211218, end: 20211218
  2. PREDONINE [Suspect]
     Active Substance: PREDNISOLONE
     Indication: Neuromyelitis optica spectrum disorder
     Dosage: 10 MILLIGRAM, QD
     Dates: start: 20190330
  3. PREDONINE [Suspect]
     Active Substance: PREDNISOLONE
  4. FAMOTIDINE [Concomitant]
     Active Substance: FAMOTIDINE
     Indication: Neuromyelitis optica spectrum disorder
     Dosage: 20 MILLIGRAM, QD
     Dates: start: 20211016

REACTIONS (2)
  - Bacterial sepsis [Recovered/Resolved]
  - Disseminated gonococcal infection [Recovered/Resolved]

NARRATIVE: CASE EVENT DATE: 20211220
